APPROVED DRUG PRODUCT: DILTIAZEM HYDROCHLORIDE
Active Ingredient: DILTIAZEM HYDROCHLORIDE
Strength: 5MG/ML
Dosage Form/Route: INJECTABLE;INJECTION
Application: A078538 | Product #001 | TE Code: AP
Applicant: HIKMA PHARMACEUTICALS USA INC
Approved: Dec 17, 2008 | RLD: No | RS: No | Type: RX